FAERS Safety Report 21358856 (Version 2)
Quarter: 2022Q4

REPORT INFORMATION
  Report Type: Spontaneous
  Country: US (occurrence: US)
  Receive Date: 20220921
  Receipt Date: 20221014
  Transmission Date: 20230113
  Serious: Yes (Hospitalization)
  Sender: FDA-Public Use
  Company Number: US-BRISTOL-MYERS SQUIBB COMPANY-2022-109234

PATIENT
  Age: 85 Year
  Sex: Female

DRUGS (1)
  1. POMALYST [Suspect]
     Active Substance: POMALIDOMIDE
     Indication: Product used for unknown indication
     Dosage: TAKE 1 CAPSULE BY  MOUTH DAILY FOR  21 DAYS  FOLLOWED BY 7  DAYS OFF. REPEAT
     Route: 048

REACTIONS (3)
  - Food poisoning [Unknown]
  - Somnolence [Unknown]
  - Fatigue [Unknown]
